FAERS Safety Report 5199018-3 (Version None)
Quarter: 2006Q4

REPORT INFORMATION
  Report Type: 
  Country: None (occurrence: None)
  Receive Date: 20060919
  Receipt Date: 20060804
  Transmission Date: 20070319
  Serious: No
  Sender: FDA-Public Use
  Company Number: 2006US001789

PATIENT
  Sex: Female

DRUGS (4)
  1. VESICARE [Suspect]
     Dosage: 5 MG
     Dates: start: 20060719
  2. LISINOPRIL HYDROCHLORTHIAZID (LISINOPRIL) [Concomitant]
  3. COLACE (DOCUSATE SODIUM) [Concomitant]
  4. LIPIZONE HC [Concomitant]

REACTIONS (3)
  - DIZZINESS [None]
  - HAEMORRHOIDS [None]
  - POLLAKIURIA [None]
